FAERS Safety Report 11262217 (Version 1)
Quarter: 2015Q3

REPORT INFORMATION
  Report Type: Report from Study
  Country: FR (occurrence: FR)
  Receive Date: 20150710
  Receipt Date: 20150710
  Transmission Date: 20151125
  Serious: Yes (Hospitalization)
  Sender: FDA-Public Use
  Company Number: FR-GLAXOSMITHKLINE-FR2015GSK098888

PATIENT
  Age: 50 Year
  Sex: Male

DRUGS (10)
  1. KARDEGIC [Concomitant]
     Active Substance: ASPIRIN LYSINE
  2. NOVORAPID [Concomitant]
     Active Substance: INSULIN ASPART
  3. PLAVIX [Concomitant]
     Active Substance: CLOPIDOGREL BISULFATE
  4. COKENZEN [Concomitant]
     Active Substance: CANDESARTAN CILEXETIL\HYDROCHLOROTHIAZIDE
  5. OMEGA-3-ACID ETHYL ESTERS. [Suspect]
     Active Substance: OMEGA-3-ACID ETHYL ESTERS
     Indication: ISCHAEMIC HEART DISEASE PROPHYLAXIS
     Dosage: UNK
     Dates: start: 20081010, end: 20090922
  6. TENORMIN [Concomitant]
     Active Substance: ATENOLOL
  7. GLUCOPHAGE [Concomitant]
     Active Substance: METFORMIN HYDROCHLORIDE
  8. TAHOR [Concomitant]
     Active Substance: ATORVASTATIN CALCIUM
  9. INIPOMP [Concomitant]
     Active Substance: PANTOPRAZOLE SODIUM
  10. MONOTILDIEM [Concomitant]
     Active Substance: DILTIAZEM

REACTIONS (2)
  - Chest pain [Recovered/Resolved]
  - Arteriogram coronary [Unknown]

NARRATIVE: CASE EVENT DATE: 20100105
